FAERS Safety Report 22538792 (Version 2)
Quarter: 2023Q2

REPORT INFORMATION
  Report Type: Spontaneous
  Country: PT (occurrence: None)
  Receive Date: 20230609
  Receipt Date: 20230613
  Transmission Date: 20230721
  Serious: Yes (Life-Threatening, Hospitalization)
  Sender: FDA-Public Use
  Company Number: 2023A129160

PATIENT
  Age: 51 Year
  Sex: Male
  Weight: 80 kg

DRUGS (12)
  1. TICAGRELOR [Suspect]
     Active Substance: TICAGRELOR
     Indication: Acute myocardial infarction
     Dosage: 180 MG LOADING DOSE FOLLOWED BY 1 CP 90 MG
     Route: 048
     Dates: start: 20230506, end: 20230507
  2. TICAGRELOR [Suspect]
     Active Substance: TICAGRELOR
     Indication: Coronary angioplasty
     Dosage: 180 MG LOADING DOSE FOLLOWED BY 1 CP 90 MG
     Route: 048
     Dates: start: 20230506, end: 20230507
  3. ASPIRIN [Suspect]
     Active Substance: ASPIRIN
     Indication: Acute myocardial infarction
     Dosage: 300MG LOADING DOSE, FOLLOWED BY 100 MG 1X/DAY
     Route: 048
     Dates: start: 20230506, end: 20230507
  4. INTEGRILIN [Suspect]
     Active Substance: EPTIFIBATIDE
     Indication: Acute myocardial infarction
     Dosage: 75 MG/100 ML, 75 MG IN 100 ML AS INFUSION, A PERFUSION RATE WAS 13 ML/H
     Route: 042
     Dates: start: 20230506, end: 20230506
  5. HEPARIN SODIUM [Suspect]
     Active Substance: HEPARIN SODIUM
     Indication: Coronary angioplasty
     Dosage: 5000 U IN BOLTS/ 5000 ARB UNIT
     Route: 042
     Dates: start: 20230506, end: 20230506
  6. ASPIRIN DL-LYSINE [Suspect]
     Active Substance: ASPIRIN DL-LYSINE
     Indication: Acute myocardial infarction
     Dosage: 300MG LOADING DOSE, FOLLOWED BY 100 MG 1X/DAY
     Route: 048
     Dates: start: 20230506, end: 20230507
  7. AMOXICILLIN\CLAVULANIC ACID [Concomitant]
     Active Substance: AMOXICILLIN\CLAVULANIC ACID
     Indication: Pneumonia aspiration
     Dates: start: 20230506
  8. NOREPINEPHRINE DINITRATE [Concomitant]
     Indication: Coronary no-reflow phenomenon
     Dosage: INTRACORONARY (IN BOLUS) AND ONLY DURING ANGIOPLASTY
     Route: 022
     Dates: start: 20230506, end: 20230506
  9. RAMIPRIL [Concomitant]
     Active Substance: RAMIPRIL
     Indication: Product used for unknown indication
  10. PROPOFOL [Concomitant]
     Active Substance: PROPOFOL
     Indication: Product used for unknown indication
     Dates: start: 20230506
  11. FENTANYL [Concomitant]
     Active Substance: FENTANYL
     Indication: Product used for unknown indication
     Dates: start: 20230506
  12. ROSUVASTATIN [Concomitant]
     Active Substance: ROSUVASTATIN
     Indication: Product used for unknown indication

REACTIONS (2)
  - Haemorrhage intracranial [Not Recovered/Not Resolved]
  - Haemorrhagic stroke [Not Recovered/Not Resolved]

NARRATIVE: CASE EVENT DATE: 20230507
